FAERS Safety Report 4987306-2 (Version None)
Quarter: 2006Q2

REPORT INFORMATION
  Report Type: 
  Country: None (occurrence: None)
  Receive Date: 20060501
  Receipt Date: 20060110
  Transmission Date: 20061013
  Serious: Yes (Death, Hospitalization, Disabling)
  Sender: FDA-Public Use
  Company Number: US-MERCK-0601USA01297

PATIENT
  Age: 85 Year
  Sex: Female

DRUGS (3)
  1. VIOXX [Suspect]
     Indication: ARTHRITIS
     Route: 048
     Dates: start: 20001011, end: 20040320
  2. ATENOLOL [Concomitant]
     Route: 065
  3. NORVASC [Concomitant]
     Route: 065

REACTIONS (12)
  - ANHEDONIA [None]
  - ANXIETY [None]
  - BRADYCARDIA [None]
  - CEREBRAL ARTERY OCCLUSION [None]
  - DYSPHAGIA [None]
  - EPIGASTRIC DISCOMFORT [None]
  - ISCHAEMIC STROKE [None]
  - LETHARGY [None]
  - OEDEMA PERIPHERAL [None]
  - PELVIC PAIN [None]
  - PNEUMONIA [None]
  - SCAR [None]
